FAERS Safety Report 8947565 (Version 1)
Quarter: 2012Q4

REPORT INFORMATION
  Report Type: Report from Study
  Country: KR (occurrence: KR)
  Receive Date: 20121205
  Receipt Date: 20121205
  Transmission Date: 20130627
  Serious: Yes (Hospitalization)
  Sender: FDA-Public Use
  Company Number: KR-ABBOTT-12P-090-1016614-00

PATIENT
  Age: 23 Year
  Sex: Male

DRUGS (2)
  1. KALETRA [Suspect]
     Indication: HIV INFECTION
     Route: 048
     Dates: start: 20111230
  2. 3TC/AZT [Concomitant]
     Indication: HIV INFECTION
     Dosage: 900mg daily
     Dates: start: 20111230

REACTIONS (2)
  - Herpes zoster [Recovered/Resolved]
  - Immunodeficiency [Unknown]
